FAERS Safety Report 8157103-8 (Version None)
Quarter: 2012Q1

REPORT INFORMATION
  Report Type: 
  Country: None (occurrence: None)
  Receive Date: 20120222
  Receipt Date: 20120215
  Transmission Date: 20120608
  Serious: Yes (Hospitalization, Disabling, Other)
  Sender: FDA-Public Use
  Company Number: BR-ABBOTT-11P-020-0706143-00

PATIENT
  Sex: Female
  Weight: 110 kg

DRUGS (10)
  1. LOSARTAN POTASSIUM [Concomitant]
     Indication: HYPERTENSION
     Route: 048
     Dates: start: 20050101
  2. HUMIRA [Suspect]
     Indication: RHEUMATOID ARTHRITIS
     Route: 058
     Dates: start: 20070907
  3. UNSPECIFIED MEDICATION [Concomitant]
     Indication: GASTRIC DISORDER
  4. CALCIUM +VIT D [Concomitant]
     Indication: PRODUCT USED FOR UNKNOWN INDICATION
  5. METHOTREXATE [Concomitant]
     Indication: RHEUMATOID ARTHRITIS
     Route: 048
     Dates: start: 20100101
  6. UNSPECIFIED MEDICATION [Concomitant]
     Indication: PROPHYLAXIS
  7. LOSARTAN POTASSIUM [Concomitant]
     Indication: HYPERTENSION
  8. NORTRIPTYLINE 50MG, RANITIDINE 150MG, PREDNISONE 15MG, INDOMETHACIN 50 [Concomitant]
     Indication: RHEUMATOID ARTHRITIS
     Route: 048
     Dates: start: 20020101
  9. UNSPECIFIED MEDICATION [Concomitant]
     Indication: DEPRESSION
  10. UNSPECIFIED MEDICATION (COMBINED FORMULA) [Concomitant]
     Indication: ANTIINFLAMMATORY THERAPY

REACTIONS (9)
  - GAIT DISTURBANCE [None]
  - SPINAL DEFORMITY [None]
  - ANKLE FRACTURE [None]
  - ABASIA [None]
  - JOINT CREPITATION [None]
  - PAIN IN EXTREMITY [None]
  - PARAESTHESIA [None]
  - PATIENT-DEVICE INCOMPATIBILITY [None]
  - BODY HEIGHT DECREASED [None]
